FAERS Safety Report 11239126 (Version 1)
Quarter: 2015Q3

REPORT INFORMATION
  Report Type: Spontaneous
  Country: US (occurrence: None)
  Receive Date: 20150701
  Receipt Date: 20150701
  Transmission Date: 20151125
  Serious: Yes (Hospitalization)
  Sender: FDA-Public Use
  Company Number: None

PATIENT
  Age: 41 Year
  Sex: Female
  Weight: 89.81 kg

DRUGS (1)
  1. METRONIDAZOL GENERIC FOR FLAGYL MANUFACTURE: TEVA [Suspect]
     Active Substance: METRONIDAZOLE
     Indication: VAGINAL INFECTION
     Dosage: 500 MG TABS?14 1 TAB;ET ?2 TIMES DAILY?BY MOUTH
     Route: 048
     Dates: start: 20150313, end: 20150315

REACTIONS (3)
  - Exposure during pregnancy [None]
  - Rash generalised [None]
  - Pruritus [None]

NARRATIVE: CASE EVENT DATE: 20150306
